FAERS Safety Report 12234078 (Version 1)
Quarter: 2016Q2

REPORT INFORMATION
  Report Type: Spontaneous
  Country: CN (occurrence: CN)
  Receive Date: 20160404
  Receipt Date: 20160404
  Transmission Date: 20160815
  Serious: Yes (Hospitalization)
  Sender: FDA-Public Use
  Company Number: CN-FERRINGPH-2016FE01410

PATIENT

DRUGS (1)
  1. DINOPROSTONE. [Suspect]
     Active Substance: DINOPROSTONE
     Indication: LABOUR INDUCTION
     Route: 067

REACTIONS (3)
  - Uterine hyperstimulation [Recovered/Resolved]
  - Uterine contractions abnormal [Recovered/Resolved]
  - Peritoneal haemorrhage [Recovered/Resolved]
